FAERS Safety Report 6073360-6 (Version None)
Quarter: 2009Q1

REPORT INFORMATION
  Report Type: 
  Country: None (occurrence: None)
  Receive Date: 20090211
  Receipt Date: 20090204
  Transmission Date: 20090719
  Serious: Yes (Hospitalization, Other)
  Sender: FDA-Public Use
  Company Number: PHHY2008NZ07405

PATIENT
  Sex: Male

DRUGS (5)
  1. CLOZARIL [Suspect]
     Indication: SCHIZOPHRENIA
     Dosage: 300 MG
     Route: 048
     Dates: start: 19961231, end: 20081016
  2. CLOZARIL [Suspect]
     Dosage: UNK
     Dates: start: 20081204, end: 20090105
  3. RITUXIMAB [Concomitant]
  4. CHOP [Concomitant]
  5. CHEMOTHERAPEUTICS NOS [Concomitant]
     Dosage: UNK

REACTIONS (33)
  - ABDOMINAL DISTENSION [None]
  - ABDOMINAL PAIN LOWER [None]
  - ANAEMIA [None]
  - BARRETT'S OESOPHAGUS [None]
  - BLAST CELL COUNT INCREASED [None]
  - CEREBRAL ATROPHY [None]
  - CONSTIPATION [None]
  - DIFFUSE LARGE B-CELL LYMPHOMA [None]
  - DIVERTICULUM [None]
  - EOSINOPHIL COUNT INCREASED [None]
  - GASTRIC ATONY [None]
  - GASTRIC DILATATION [None]
  - HAEMATOCRIT DECREASED [None]
  - HAEMOGLOBIN DECREASED [None]
  - HYPERTENSION [None]
  - HYPOCHROMASIA [None]
  - LYMPH NODE CANCER METASTATIC [None]
  - LYMPHOCYTE COUNT [None]
  - LYMPHOCYTE COUNT DECREASED [None]
  - METAMYELOCYTE COUNT INCREASED [None]
  - MONOCYTE COUNT INCREASED [None]
  - MONOCYTOSIS [None]
  - MYELOCYTE COUNT INCREASED [None]
  - NEUTROPENIA [None]
  - NEUTROPHIL COUNT DECREASED [None]
  - NEUTROPHIL COUNT INCREASED [None]
  - OESOPHAGEAL ULCER [None]
  - PLATELET COUNT DECREASED [None]
  - PROMYELOCYTE COUNT INCREASED [None]
  - RED BLOOD CELL COUNT DECREASED [None]
  - RED CELL DISTRIBUTION WIDTH INCREASED [None]
  - WHITE BLOOD CELL COUNT DECREASED [None]
  - WHITE BLOOD CELL COUNT INCREASED [None]
